FAERS Safety Report 9371826 (Version 2)
Quarter: 2014Q2

REPORT INFORMATION
  Report Type: Report from Study
  Country: US (occurrence: US)
  Receive Date: 20130627
  Receipt Date: 20140626
  Transmission Date: 20141212
  Serious: Yes (Other)
  Sender: FDA-Public Use
  Company Number: US-MYLANLABS-2012S1006996

PATIENT
  Age: 46 Year
  Sex: Female

DRUGS (8)
  1. CLOZAPINE TABLETS [Suspect]
     Indication: PSYCHOTIC DISORDER
     Dates: start: 20111110
  2. CLOZAPINE TABLETS [Suspect]
     Indication: PSYCHOTIC DISORDER
  3. CLOZAPINE TABLETS [Suspect]
     Indication: PSYCHOTIC DISORDER
     Route: 048
     Dates: end: 201301
  4. CLOZAPINE TABLETS [Suspect]
     Indication: PSYCHOTIC DISORDER
     Route: 048
     Dates: start: 201301, end: 20130307
  5. CLOZAPINE TABLETS [Suspect]
     Indication: PSYCHOTIC DISORDER
     Route: 048
     Dates: start: 2013
  6. CLOZAPINE TABLETS [Suspect]
     Indication: PSYCHOTIC DISORDER
     Dosage: AT NOON
     Route: 048
     Dates: start: 2013
  7. CLOZAPINE TABLETS [Suspect]
     Indication: PSYCHOTIC DISORDER
     Dosage: AT NOON
     Route: 048
     Dates: start: 2013
  8. CLOZAPINE TABLETS [Suspect]
     Indication: PSYCHOTIC DISORDER
     Dosage: AT NOON
     Route: 048
     Dates: start: 2013

REACTIONS (2)
  - Granulocytopenia [Recovered/Resolved]
  - Leukopenia [Not Recovered/Not Resolved]
